FAERS Safety Report 8143976-1 (Version None)
Quarter: 2012Q1

REPORT INFORMATION
  Report Type: 
  Country: None (occurrence: None)
  Receive Date: 20120217
  Receipt Date: 20120217
  Transmission Date: 20120608
  Serious: Yes (Hospitalization)
  Sender: FDA-Public Use
  Company Number: None

PATIENT
  Age: 39 Year
  Sex: Female
  Weight: 68.038 kg

DRUGS (3)
  1. AVELOX [Concomitant]
     Dosage: ONE
     Route: 048
     Dates: start: 20100622, end: 20100624
  2. FLAGYL [Concomitant]
  3. CIPROFLOXACIN [Suspect]
     Indication: DIVERTICULITIS
     Dosage: TWICE
     Route: 041
     Dates: start: 20110904, end: 20110911

REACTIONS (10)
  - INSOMNIA [None]
  - DIZZINESS [None]
  - CONFUSIONAL STATE [None]
  - CHEST PAIN [None]
  - MUSCULAR WEAKNESS [None]
  - SYNCOPE [None]
  - PAIN IN EXTREMITY [None]
  - CONVULSION [None]
  - TIC [None]
  - TACHYCARDIA [None]
